FAERS Safety Report 4886378-3 (Version None)
Quarter: 2006Q1

REPORT INFORMATION
  Report Type: 
  Country: None (occurrence: None)
  Receive Date: 20060120
  Receipt Date: 20051005
  Transmission Date: 20060701
  Serious: Yes (Hospitalization, Disabling)
  Sender: FDA-Public Use
  Company Number: US-MERCK-0510USA04674

PATIENT
  Age: 52 Year
  Sex: Male
  Weight: 96 kg

DRUGS (1)
  1. VIOXX [Suspect]
     Indication: PAIN
     Route: 048
     Dates: start: 20011101, end: 20020201

REACTIONS (10)
  - ANGINA PECTORIS [None]
  - CARDIOMEGALY [None]
  - CARPAL TUNNEL SYNDROME [None]
  - CERVICOBRACHIAL SYNDROME [None]
  - CHEST PAIN [None]
  - CHRONIC OBSTRUCTIVE PULMONARY DISEASE [None]
  - CUBITAL TUNNEL SYNDROME [None]
  - HEPATITIS C [None]
  - INTERVERTEBRAL DISC PROTRUSION [None]
  - SYNOVITIS [None]
